FAERS Safety Report 5505670-2 (Version None)
Quarter: 2007Q4

REPORT INFORMATION
  Report Type: 
  Country: None (occurrence: None)
  Receive Date: 20071102
  Receipt Date: 20071101
  Transmission Date: 20080405
  Serious: Yes (Other)
  Sender: FDA-Public Use
  Company Number: AU-BRISTOL-MYERS SQUIBB COMPANY-13958137

PATIENT
  Age: 72 Year
  Sex: Male

DRUGS (3)
  1. ATAZANAVIR SULFATE [Suspect]
  2. SIMVASTATIN [Interacting]
  3. AMIODARONE HCL [Interacting]
     Dosage: REDUCED TO 200 MG

REACTIONS (3)
  - DRUG INTERACTION [None]
  - RENAL FAILURE ACUTE [None]
  - RHABDOMYOLYSIS [None]
